FAERS Safety Report 8716302 (Version 2)
Quarter: 2013Q1

REPORT INFORMATION
  Report Type: Report from Study
  Country: BR (occurrence: BR)
  Receive Date: 20120810
  Receipt Date: 20130122
  Transmission Date: 20140127
  Serious: Yes (Hospitalization, Other)
  Sender: FDA-Public Use
  Company Number: BR-009507513-1208BRA002652

PATIENT
  Sex: 0

DRUGS (12)
  1. IMIPENEM (+) CILASTATIN SODIUM [Suspect]
     Indication: BACTERIAL SEPSIS
     Dosage: UNK, UNKNOWN
     Route: 065
     Dates: start: 20100902, end: 20100908
  2. IMIPENEM (+) CILASTATIN SODIUM [Suspect]
     Indication: PNEUMONIA
  3. VANCOMYCIN [Concomitant]
     Indication: BACTERIAL INFECTION
     Dosage: UNK, UNKNOWN
     Route: 065
     Dates: start: 20100728, end: 20100921
  4. VANCOMYCIN [Concomitant]
     Indication: URINARY TRACT INFECTION
  5. RIFAMPIN [Concomitant]
     Indication: BACTERIAL INFECTION
     Dosage: UNK UNK, UNKNOWN
     Route: 065
     Dates: start: 20100728, end: 20100905
  6. RIFAMPIN [Concomitant]
     Indication: URINARY TRACT INFECTION
  7. CEFTAZIDIME [Concomitant]
     Indication: SEPSIS
     Dosage: UNK, UNKNOWN
     Route: 065
     Dates: start: 20100830, end: 20100902
  8. CEFTAZIDIME [Concomitant]
     Indication: PNEUMONIA
  9. MEROPENEM [Concomitant]
     Indication: BACTERIAL SEPSIS
     Dosage: UNK
     Dates: start: 20100908
  10. MEROPENEM [Concomitant]
     Indication: PNEUMONIA
  11. DIAZEPAM [Concomitant]
     Dosage: UNK
     Dates: start: 20100922
  12. PREDNISONE [Concomitant]
     Indication: RHEUMATOID ARTHRITIS
     Dosage: 5 MG, QD
     Route: 048
     Dates: start: 20100317

REACTIONS (8)
  - Convulsion [Recovered/Resolved]
  - Cerebral atrophy [Unknown]
  - Altered state of consciousness [Unknown]
  - Gliosis [Unknown]
  - Pyrexia [Unknown]
  - Sinusitis [Unknown]
  - Oral candidiasis [Unknown]
  - Hallucination [Recovered/Resolved]
